FAERS Safety Report 21435211 (Version 4)
Quarter: 2023Q1

REPORT INFORMATION
  Report Type: Spontaneous
  Country: US (occurrence: US)
  Receive Date: 20221010
  Receipt Date: 20230210
  Transmission Date: 20230417
  Serious: Yes (Other)
  Sender: FDA-Public Use
  Company Number: US-PFIZER INC-PV202200078062

PATIENT
  Age: 36 Year
  Sex: Female

DRUGS (4)
  1. XELJANZ [Interacting]
     Active Substance: TOFACITINIB CITRATE
     Indication: Colitis ulcerative
     Dosage: UNK, 2X/DAY, DAILY (TAKES THE PILL EVERY DAY, TWICE A DAY)
  2. XELJANZ [Interacting]
     Active Substance: TOFACITINIB CITRATE
     Dosage: UNK, 2X/DAY (TAKES THE PILL EVERY DAY, TWICE A DAY)
  3. PREDNISONE [Interacting]
     Active Substance: PREDNISONE
     Indication: Diarrhoea
     Dosage: UNK
  4. PREDNISONE [Interacting]
     Active Substance: PREDNISONE
     Indication: Rectal haemorrhage

REACTIONS (5)
  - Drug interaction [Unknown]
  - Immunosuppression [Unknown]
  - Blood cholesterol increased [Unknown]
  - Drug ineffective [Unknown]
  - Product dose omission in error [Unknown]
